FAERS Safety Report 6173694-0 (Version None)
Quarter: 2009Q2

REPORT INFORMATION
  Report Type: 
  Country: None (occurrence: None)
  Receive Date: 20090429
  Receipt Date: 20090429
  Transmission Date: 20091009
  Serious: Yes (Other)
  Sender: FDA-Public Use
  Company Number: None

PATIENT
  Age: 48 Year
  Sex: Male

DRUGS (1)
  1. CEFTRIAXONE [Suspect]
     Indication: UPPER RESPIRATORY TRACT INFECTION
     Dosage: 125 MG ONCE IM
     Route: 030
     Dates: start: 20090423, end: 20090423

REACTIONS (7)
  - DIZZINESS [None]
  - DYSURIA [None]
  - MUSCLE TWITCHING [None]
  - PULSE ABSENT [None]
  - RESPIRATORY ARREST [None]
  - SYNCOPE [None]
  - UNRESPONSIVE TO STIMULI [None]
